FAERS Safety Report 5689141-9 (Version None)
Quarter: 2008Q1

REPORT INFORMATION
  Report Type: 
  Country: None (occurrence: None)
  Receive Date: 20080331
  Receipt Date: 20080325
  Transmission Date: 20080703
  Serious: Yes (Other)
  Sender: FDA-Public Use
  Company Number: US-SANOFI-SYNTHELABO-A03200800456

PATIENT
  Sex: Male

DRUGS (7)
  1. OXALIPLATIN [Suspect]
     Indication: COLON CANCER
     Route: 042
     Dates: start: 20080109, end: 20080109
  2. PRAVACHOL [Concomitant]
     Indication: BLOOD CHOLESTEROL INCREASED
     Route: 065
  3. DECADRON [Concomitant]
     Indication: PREMEDICATION
     Route: 065
  4. ALOXI [Concomitant]
     Indication: PREMEDICATION
     Dosage: UNK
     Route: 065
  5. ERBITUX [Interacting]
     Indication: COLON CANCER
     Route: 065
     Dates: start: 20080109, end: 20080109
  6. FLUOROURACIL [Interacting]
     Indication: COLON CANCER
     Route: 065
     Dates: start: 20080109, end: 20080109
  7. LEUCOVORIN CALCIUM [Interacting]
     Indication: COLON CANCER
     Route: 065
     Dates: start: 20080109, end: 20080109

REACTIONS (6)
  - ASTHMA [None]
  - DEEP VEIN THROMBOSIS [None]
  - DISEASE PROGRESSION [None]
  - DRUG ADMINISTRATION ERROR [None]
  - EXTRAVASATION [None]
  - PLEURAL EFFUSION [None]
